FAERS Safety Report 7849697-4 (Version None)
Quarter: 2011Q4

REPORT INFORMATION
  Report Type: 
  Country: None (occurrence: None)
  Receive Date: 20111025
  Receipt Date: 20111025
  Transmission Date: 20120403
  Serious: Yes (Other)
  Sender: FDA-Public Use
  Company Number: None

PATIENT
  Age: 59 Year
  Sex: Male
  Weight: 48.4 kg

DRUGS (1)
  1. ETHACRYNIC ACID [Suspect]
     Indication: HYPERTENSION
     Dosage: 25 MG BID PO
     Route: 048
     Dates: start: 20101220, end: 20110103

REACTIONS (2)
  - DEAFNESS PERMANENT [None]
  - OTOTOXICITY [None]
